FAERS Safety Report 8533153-4 (Version None)
Quarter: 2012Q3

REPORT INFORMATION
  Report Type: 
  Country: None (occurrence: None)
  Receive Date: 20120724
  Receipt Date: 20120712
  Transmission Date: 20120928
  Serious: Yes (Death, Hospitalization)
  Sender: FDA-Public Use
  Company Number: FR-BRISTOL-MYERS SQUIBB COMPANY-16765554

PATIENT
  Age: 56 Year
  Sex: Male

DRUGS (4)
  1. CRESTOR [Concomitant]
  2. JANUMET [Concomitant]
     Dosage: DOSE:50MG/1000MG,2/D (1 IN THE MORNING AND 1 IN THE EVENING)
  3. NIFLURIL CAPS 250 MG [Suspect]
     Indication: ARTHRALGIA
     Dosage: HARD CAPSULES,FREQ:IF NECESSARLY
     Route: 048
     Dates: start: 20120101
  4. GLUCOPHAGE [Suspect]

REACTIONS (4)
  - OESOPHAGEAL VARICES HAEMORRHAGE [None]
  - DIABETIC KETOACIDOSIS [None]
  - SEPTIC SHOCK [None]
  - SHOCK HAEMORRHAGIC [None]
